FAERS Safety Report 20959341 (Version 1)
Quarter: 2022Q2

REPORT INFORMATION
  Report Type: Spontaneous
  Country: US (occurrence: US)
  Receive Date: 20220614
  Receipt Date: 20220614
  Transmission Date: 20220720
  Serious: Yes (Hospitalization, Other)
  Sender: FDA-Public Use
  Company Number: US-BRISTOL-MYERS SQUIBB COMPANY-2022-051250

PATIENT
  Age: 84 Year
  Sex: Female
  Weight: 67.58 kg

DRUGS (1)
  1. REVLIMID [Suspect]
     Active Substance: LENALIDOMIDE
     Indication: Plasma cell myeloma
     Dosage: 3 W, 1 W OFF
     Route: 048
     Dates: start: 20220501

REACTIONS (2)
  - Spinal compression fracture [Unknown]
  - Nosocomial infection [Unknown]
